FAERS Safety Report 15991897 (Version 33)
Quarter: 2022Q2

REPORT INFORMATION
  Report Type: Spontaneous
  Country: US (occurrence: US)
  Receive Date: 20190221
  Receipt Date: 20220427
  Transmission Date: 20220721
  Serious: Yes (Other)
  Sender: FDA-Public Use
  Company Number: US-PFIZER INC-2019068478

PATIENT
  Age: 76 Year
  Sex: Female
  Weight: 70 kg

DRUGS (12)
  1. PREMARIN [Suspect]
     Active Substance: ESTROGENS, CONJUGATED
     Indication: Urinary tract infection
     Dosage: 2 G, 2X/WEEK (2G ON TUESDAY AND SATURDAY)
     Route: 067
     Dates: start: 2018
  2. PREMARIN [Suspect]
     Active Substance: ESTROGENS, CONJUGATED
     Indication: Atrial fibrillation
     Dosage: UNK (A HALF A DOSE )
  3. PREMARIN [Suspect]
     Active Substance: ESTROGENS, CONJUGATED
     Indication: Cardiac disorder
     Dosage: 2 G, 2X/WEEK (2G ON TUESDAY AND SATURDAY)
     Route: 067
  4. PREMARIN [Suspect]
     Active Substance: ESTROGENS, CONJUGATED
     Indication: Fibromyalgia
     Dosage: 2 G [2GRAMS VAGINALLY TWICE PER WEEK]
     Route: 067
  5. PREMARIN [Suspect]
     Active Substance: ESTROGENS, CONJUGATED
     Indication: Scoliosis
     Dosage: 1 G
  6. PREMARIN [Suspect]
     Active Substance: ESTROGENS, CONJUGATED
     Indication: Neuropathy peripheral
     Dosage: UNK (USING, NOT EVEN HALF A DOSE )
  7. PREMARIN [Suspect]
     Active Substance: ESTROGENS, CONJUGATED
     Indication: Intervertebral disc degeneration
     Dosage: 2 G (VAG), 2X/WEEK
     Route: 067
     Dates: start: 20210723
  8. PREMARIN [Suspect]
     Active Substance: ESTROGENS, CONJUGATED
     Indication: Osteoarthritis
     Dosage: UNK
  9. PREMARIN [Suspect]
     Active Substance: ESTROGENS, CONJUGATED
     Dosage: 0.625 MG
  10. PREMARIN [Suspect]
     Active Substance: ESTROGENS, CONJUGATED
     Dosage: 2 G, 2X/WEEK
     Route: 067
     Dates: start: 20211015
  11. PREMARIN [Suspect]
     Active Substance: ESTROGENS, CONJUGATED
     Dosage: UNK
  12. PREMARIN [Suspect]
     Active Substance: ESTROGENS, CONJUGATED
     Dosage: 2 G, 2X/WEEK (2 G VAG TWICE WEEKLY)
     Route: 067
     Dates: start: 20211116

REACTIONS (26)
  - Pneumonia [Unknown]
  - Arthritis [Unknown]
  - Nasopharyngitis [Not Recovered/Not Resolved]
  - Urinary tract infection [Unknown]
  - Fibromyalgia [Unknown]
  - Illness [Unknown]
  - Chills [Unknown]
  - Condition aggravated [Unknown]
  - Blepharitis [Unknown]
  - Hypertension [Unknown]
  - Weight increased [Unknown]
  - Nervousness [Unknown]
  - Memory impairment [Unknown]
  - Micturition urgency [Unknown]
  - Hypersensitivity [Unknown]
  - Product prescribing error [Unknown]
  - Intentional product use issue [Unknown]
  - Product packaging issue [Unknown]
  - Off label use [Unknown]
  - Drug effective for unapproved indication [Unknown]
  - Body height decreased [Unknown]
  - Fall [Unknown]
  - Arthralgia [Unknown]
  - Contusion [Unknown]
  - Gait disturbance [Unknown]
  - Arthralgia [Unknown]

NARRATIVE: CASE EVENT DATE: 20180101
